FAERS Safety Report 8157213-5 (Version None)
Quarter: 2012Q1

REPORT INFORMATION
  Report Type: 
  Country: None (occurrence: None)
  Receive Date: 20120222
  Receipt Date: 20120222
  Transmission Date: 20120608
  Serious: Yes (Other)
  Sender: FDA-Public Use
  Company Number: None

PATIENT
  Age: 26 Year
  Sex: Male
  Weight: 70.306 kg

DRUGS (1)
  1. CREST PRO-HEALTH COMPLETE RINSE [Suspect]
     Indication: DENTAL DISORDER PROPHYLAXIS
     Dosage: 10 ML SWISHING
     Route: 048

REACTIONS (3)
  - APHTHOUS STOMATITIS [None]
  - MOUTH ULCERATION [None]
  - ORAL DISCOMFORT [None]
